FAERS Safety Report 7026526-2 (Version None)
Quarter: 2010Q4

REPORT INFORMATION
  Report Type: 
  Country: None (occurrence: None)
  Receive Date: 20101004
  Receipt Date: 20100928
  Transmission Date: 20110411
  Serious: Yes (Hospitalization)
  Sender: FDA-Public Use
  Company Number: FR-SANOFI-AVENTIS-2010SA057953

PATIENT
  Age: 68 Year
  Sex: Male

DRUGS (8)
  1. TAXOTERE [Suspect]
     Route: 042
     Dates: start: 20100803, end: 20100803
  2. SOLUPRED [Suspect]
     Route: 048
     Dates: start: 20100804
  3. PRIMPERAN TAB [Suspect]
     Indication: NAUSEA
     Route: 048
     Dates: start: 20100804
  4. EMEND [Suspect]
     Route: 048
     Dates: start: 20100803, end: 20100804
  5. SOLU-MEDROL [Suspect]
     Route: 042
     Dates: start: 20100803, end: 20100804
  6. ZOFRAN [Suspect]
     Indication: PREMEDICATION
     Dates: start: 20100803, end: 20100804
  7. MOTILIUM [Suspect]
     Route: 048
     Dates: start: 20100804
  8. NEULASTA [Suspect]
     Route: 042
     Dates: start: 20100805, end: 20100805

REACTIONS (2)
  - ANAEMIA HAEMOLYTIC AUTOIMMUNE [None]
  - COOMBS POSITIVE HAEMOLYTIC ANAEMIA [None]
